FAERS Safety Report 9717587 (Version 2)
Quarter: 2014Q2

REPORT INFORMATION
  Report Type: Spontaneous
  Country: CA (occurrence: CA)
  Receive Date: 20131127
  Receipt Date: 20140403
  Transmission Date: 20141212
  Serious: Yes (Other)
  Sender: FDA-Public Use
  Company Number: CA-ABBVIE-13P-028-1173809-00

PATIENT
  Sex: 0

DRUGS (1)
  1. ADALIMUMAB [Suspect]
     Indication: CROHN^S DISEASE

REACTIONS (1)
  - Colon cancer [Unknown]
